FAERS Safety Report 9425792 (Version 4)
Quarter: 2014Q1

REPORT INFORMATION
  Report Type: Report from Study
  Country: BW (occurrence: BW)
  Receive Date: 20130729
  Receipt Date: 20140226
  Transmission Date: 20141002
  Serious: Yes (Other)
  Sender: FDA-Public Use
  Company Number: BW-GILEAD-2013-0079904

PATIENT
  Age: 43 Year
  Sex: Female

DRUGS (5)
  1. EMTRICITABINE/TENOFOVIR DISOPROXIL FUMARATE [Suspect]
     Indication: HIV INFECTION
     Dosage: 1 DF, QD
     Route: 048
     Dates: start: 20110818
  2. EFAVIRENZ [Suspect]
     Indication: HIV INFECTION
     Dosage: UNK UNK, QD
     Route: 065
     Dates: start: 20110818, end: 20130313
  3. LOPINAVIR W/RITONAVIR [Suspect]
     Indication: HIV INFECTION
     Dosage: 1 DF, BID
     Route: 048
     Dates: start: 20130313
  4. FERROUS FUMARATE [Concomitant]
     Dosage: UNK
     Dates: start: 20130313
  5. FOLIC ACID [Concomitant]
     Dosage: UNK
     Dates: start: 20130313

REACTIONS (1)
  - Stillbirth [Recovered/Resolved]
